FAERS Safety Report 9322615 (Version 1)
Quarter: 2013Q2

REPORT INFORMATION
  Report Type: Spontaneous
  Country: US (occurrence: US)
  Receive Date: 20130531
  Receipt Date: 20130531
  Transmission Date: 20140414
  Serious: No
  Sender: FDA-Public Use
  Company Number: US-ASTRAZENECA-2013SE37279

PATIENT
  Sex: Male

DRUGS (2)
  1. CRESTOR [Suspect]
     Indication: BLOOD CHOLESTEROL ABNORMAL
     Dosage: 2.5 TO 40 MG
     Route: 048
  2. CO Q 10 [Concomitant]

REACTIONS (2)
  - Muscle spasms [Unknown]
  - Intentional drug misuse [Unknown]
